FAERS Safety Report 12454853 (Version 5)
Quarter: 2016Q3

REPORT INFORMATION
  Report Type: Report from Study
  Country: US (occurrence: US)
  Receive Date: 20160610
  Receipt Date: 20160916
  Transmission Date: 20161109
  Serious: Yes (Hospitalization)
  Sender: FDA-Public Use
  Company Number: US-ROCHE-1770682

PATIENT
  Age: 60 Year
  Sex: Male
  Weight: 95.25 kg

DRUGS (1)
  1. ATEZOLIZUMAB [Suspect]
     Active Substance: ATEZOLIZUMAB
     Indication: BLADDER TRANSITIONAL CELL CARCINOMA
     Dosage: 15 MG/KG?DOSE INFO PULLED FROM PROTOCOL?LAST DOSE PRIOR TO EVENTS 18/MAY/2016, DYSPNEA
     Route: 042
     Dates: end: 20160610

REACTIONS (1)
  - Dyspnoea [Recovered/Resolved]

NARRATIVE: CASE EVENT DATE: 20160530
